FAERS Safety Report 6313956-7 (Version None)
Quarter: 2009Q3

REPORT INFORMATION
  Report Type: 
  Country: None (occurrence: None)
  Receive Date: 20090818
  Receipt Date: 20090813
  Transmission Date: 20100115
  Serious: Yes (Life-Threatening, Hospitalization)
  Sender: FDA-Public Use
  Company Number: US-WYE-H10593609

PATIENT
  Sex: Female

DRUGS (4)
  1. PRISTIQ [Suspect]
     Indication: DEPRESSION
     Dosage: UNKNOWN
     Dates: start: 20090703
  2. PRISTIQ [Suspect]
     Indication: ANXIETY
  3. NYQUIL [Suspect]
     Dosage: DRANK THE BOTTLE (OVERDOSE AMOUNT)
     Route: 048
     Dates: start: 20090716, end: 20090716
  4. ASPIRIN [Suspect]
     Dosage: 200, 500 MG TABLETS (OVERDOSE AMOUNT)
     Route: 048
     Dates: start: 20090716, end: 20090716

REACTIONS (9)
  - ANXIETY [None]
  - CONDITION AGGRAVATED [None]
  - CONVULSION [None]
  - DRUG TOXICITY [None]
  - HYPERHIDROSIS [None]
  - INTENTIONAL OVERDOSE [None]
  - MIGRAINE [None]
  - SUICIDE ATTEMPT [None]
  - URINARY RETENTION [None]
